FAERS Safety Report 19161755 (Version 1)
Quarter: 2021Q2

REPORT INFORMATION
  Report Type: Spontaneous
  Country: US (occurrence: US)
  Receive Date: 20210420
  Receipt Date: 20210420
  Transmission Date: 20210717
  Serious: No
  Sender: FDA-Public Use
  Company Number: None

PATIENT
  Age: 80 Year
  Sex: Male
  Weight: 61.23 kg

DRUGS (1)
  1. PATISIRAN (PATISIRAN 2MG/ML INJ,SOLN) [Suspect]
     Active Substance: PATISIRAN
     Indication: VASCULAR OPERATION
     Route: 042
     Dates: start: 20201211, end: 20210326

REACTIONS (3)
  - Infusion related reaction [None]
  - Liver function test increased [None]
  - International normalised ratio increased [None]

NARRATIVE: CASE EVENT DATE: 20210326
